FAERS Safety Report 10316462 (Version 2)
Quarter: 2014Q3

REPORT INFORMATION
  Report Type: Other
  Country: US (occurrence: US)
  Receive Date: 20140719
  Receipt Date: 20140719
  Transmission Date: 20150326
  Serious: Yes (Other)
  Sender: FDA-Public Use
  Company Number: US-GSKPPD-2014GSK001275

PATIENT
  Sex: Female

DRUGS (6)
  1. LASIX [Concomitant]
     Active Substance: FUROSEMIDE
  2. POTASSIUM [Concomitant]
     Active Substance: POTASSIUM
  3. LISINOPRIL. [Concomitant]
     Active Substance: LISINOPRIL
     Route: 048
  4. AVANDIA [Suspect]
     Active Substance: ROSIGLITAZONE MALEATE
     Indication: DIABETES MELLITUS
     Route: 048
  5. ATORVASTATIN [Concomitant]
     Active Substance: ATORVASTATIN
  6. ASPIRIN. [Concomitant]
     Active Substance: ASPIRIN
     Route: 048

REACTIONS (1)
  - Cardiac failure congestive [None]
